FAERS Safety Report 5099073-5 (Version None)
Quarter: 2006Q3

REPORT INFORMATION
  Report Type: 
  Country: None (occurrence: None)
  Receive Date: 20060907
  Receipt Date: 20060221
  Transmission Date: 20061208
  Serious: Yes (Disabling)
  Sender: FDA-Public Use
  Company Number: US-MERCK-0603USA00969

PATIENT
  Age: 48 Year
  Sex: Female

DRUGS (3)
  1. ZOCOR [Suspect]
     Indication: BLOOD CHOLESTEROL
     Route: 048
     Dates: start: 20050501, end: 20051130
  2. LITHIUM ACETATE [Concomitant]
     Indication: DEPRESSION
     Route: 065
  3. ADVAIR DISKUS 100/50 [Concomitant]
     Route: 065

REACTIONS (12)
  - ABDOMINAL PAIN UPPER [None]
  - ARTHRALGIA [None]
  - ASTHMA [None]
  - BRONCHITIS [None]
  - CARDIOVASCULAR DISORDER [None]
  - DEPRESSION [None]
  - DRY SKIN [None]
  - FATIGUE [None]
  - HYPERTENSION [None]
  - LIMB INJURY [None]
  - MYALGIA [None]
  - POLYMYOSITIS [None]
